FAERS Safety Report 4740917-1 (Version None)
Quarter: 2005Q3

REPORT INFORMATION
  Report Type: 
  Country: None (occurrence: None)
  Receive Date: 20050810
  Receipt Date: 20050613
  Transmission Date: 20060218
  Serious: Yes (Other)
  Sender: FDA-Public Use
  Company Number: DE-BRISTOL-MYERS SQUIBB COMPANY-13002027

PATIENT
  Age: 55 Year
  Sex: Female

DRUGS (2)
  1. DYNACIL [Suspect]
     Indication: HYPERTENSION
     Route: 048
     Dates: start: 19970101, end: 20050601
  2. LETROZOLE [Concomitant]
     Indication: BREAST CANCER
     Route: 048

REACTIONS (4)
  - AGEUSIA [None]
  - ALOPECIA [None]
  - NAUSEA [None]
  - OEDEMA PERIPHERAL [None]
